FAERS Safety Report 13767607 (Version 2)
Quarter: 2017Q3

REPORT INFORMATION
  Report Type: Spontaneous
  Country: US (occurrence: US)
  Receive Date: 20170719
  Receipt Date: 20170727
  Transmission Date: 20171127
  Serious: No
  Sender: FDA-Public Use
  Company Number: US-TEVA-788364ACC

PATIENT
  Sex: Female

DRUGS (1)
  1. PARAGARD T 380A [Suspect]
     Active Substance: COPPER
     Indication: CONTRACEPTION
     Dates: start: 2011

REACTIONS (4)
  - Muscle spasms [Unknown]
  - Complication associated with device [Not Recovered/Not Resolved]
  - Vaginal haemorrhage [Unknown]
  - Device breakage [Not Recovered/Not Resolved]
